FAERS Safety Report 8500108-5 (Version None)
Quarter: 2012Q3

REPORT INFORMATION
  Report Type: 
  Country: None (occurrence: None)
  Receive Date: 20120710
  Receipt Date: 20120703
  Transmission Date: 20120928
  Serious: Yes (Hospitalization)
  Sender: FDA-Public Use
  Company Number: US-BAYER-2011-097404

PATIENT
  Age: 36 Year
  Sex: Female
  Weight: 69.388 kg

DRUGS (2)
  1. YASMIN [Suspect]
     Indication: CONTRACEPTION
  2. YASMIN [Suspect]
     Indication: PREMENSTRUAL SYNDROME
     Dosage: UNK
     Route: 048
     Dates: start: 20010701, end: 20030301

REACTIONS (5)
  - GALLBLADDER DISORDER [None]
  - PAIN [None]
  - PULMONARY EMBOLISM [None]
  - INJURY [None]
  - EMOTIONAL DISTRESS [None]
